FAERS Safety Report 8429748-9 (Version None)
Quarter: 2012Q2

REPORT INFORMATION
  Report Type: 
  Country: None (occurrence: None)
  Receive Date: 20120516
  Receipt Date: 20120502
  Transmission Date: 20120825
  Serious: Yes (Hospitalization, Other)
  Sender: FDA-Public Use
  Company Number: 2012PROUSA01168

PATIENT
  Age: 61 Year
  Sex: Male
  Weight: 106.4 kg

DRUGS (11)
  1. RITALIN [Concomitant]
  2. CELEXA [Concomitant]
  3. CASODEX [Concomitant]
  4. NORCO [Concomitant]
  5. NEUPOGEN [Concomitant]
  6. METAMUCIL /00091301/ (PSYLLIUM HYDROPHILIC MUCILLOID) [Concomitant]
  7. TRICOR /00090101/ (ADENOSINE) [Concomitant]
  8. PROVENGE [Suspect]
     Indication: PROSTATE CANCER METASTATIC
     Dosage: 250 ML, SINGLE, INTRAVENOUS
     Route: 042
     Dates: start: 20120210, end: 20120210
  9. DECARDON /00016001/ (DEXAMETHASONE) [Concomitant]
  10. ZOFRAN /00955301/ (ONDANSETRON) [Concomitant]
  11. DILAUDID (HYDROMORPHINE HYDROHCLORIDE) [Concomitant]

REACTIONS (8)
  - NODULE [None]
  - DEHYDRATION [None]
  - PROCTALGIA [None]
  - DISEASE PROGRESSION [None]
  - HYDRONEPHROSIS [None]
  - DIVERTICULUM [None]
  - CONSTIPATION [None]
  - PELVIC MASS [None]
